FAERS Safety Report 24362875 (Version 1)
Quarter: 2024Q3

REPORT INFORMATION
  Report Type: Spontaneous
  Country: US (occurrence: None)
  Receive Date: 20240924
  Receipt Date: 20240924
  Transmission Date: 20241017
  Serious: Yes (Life-Threatening, Hospitalization, Disabling, Other)
  Sender: Public
  Company Number: None

PATIENT
  Age: 69 Year
  Sex: Male
  Weight: 87.75 kg

DRUGS (16)
  1. OPDIVO [Suspect]
     Active Substance: NIVOLUMAB
     Indication: Prophylaxis
     Dates: start: 20230831, end: 20230914
  2. OPDIVO [Suspect]
     Active Substance: NIVOLUMAB
     Indication: Neoplasm malignant
  3. ELIQUIS [Concomitant]
     Active Substance: APIXABAN
  4. ICOSAPENT ETHYL [Concomitant]
     Active Substance: ICOSAPENT ETHYL
  5. ATORVASTATIN [Concomitant]
     Active Substance: ATORVASTATIN
  6. AMIODARONE [Concomitant]
     Active Substance: AMIODARONE
  7. COENZYME Q10 [Concomitant]
     Active Substance: DIETARY SUPPLEMENT\UBIDECARENONE
  8. VITAMIN D3 [Concomitant]
     Active Substance: CHOLECALCIFEROL
  9. CALCIUM [Concomitant]
     Active Substance: CALCIUM
  10. CRANBERRY FRUIT [Concomitant]
  11. GARLIC [Concomitant]
     Active Substance: GARLIC
  12. VITAMINS [Concomitant]
     Active Substance: VITAMINS
  13. VITAMIN C [Concomitant]
     Active Substance: ASCORBIC ACID
  14. IRON [Concomitant]
     Active Substance: IRON
  15. ZINC [Concomitant]
     Active Substance: ZINC
  16. B12 [Concomitant]

REACTIONS (11)
  - Back pain [None]
  - Malaise [None]
  - Urinary tract infection [None]
  - Hepatitis [None]
  - Hepatitis [None]
  - Dehydration [None]
  - Walking aid user [None]
  - Bedridden [None]
  - Impaired work ability [None]
  - Atrial fibrillation [None]
  - Pyrexia [None]

NARRATIVE: CASE EVENT DATE: 20230920
